FAERS Safety Report 4644205-3 (Version None)
Quarter: 2005Q2

REPORT INFORMATION
  Report Type: 
  Country: None (occurrence: None)
  Receive Date: 20050331
  Receipt Date: 20050106
  Transmission Date: 20051028
  Serious: No
  Sender: FDA-Public Use
  Company Number: 05P-163-0285534-00

PATIENT
  Age: 68 Year
  Sex: Female
  Weight: 64.8644 kg

DRUGS (6)
  1. HUMIRA [Suspect]
     Indication: PSORIATIC ARTHROPATHY
     Dosage: 40 MG, 1 IN 2 WK, SUBCUTANEOUS
     Route: 058
     Dates: start: 20050103
  2. VICODIN [Concomitant]
  3. FOLIC ACID [Concomitant]
  4. SULFASALAZINE [Concomitant]
  5. DIAZEPAM [Concomitant]
  6. METHYLPREDNISOLONE 16MG TAB [Concomitant]

REACTIONS (2)
  - ASTHENIA [None]
  - HEADACHE [None]
